FAERS Safety Report 8840087 (Version 3)
Quarter: 2013Q1

REPORT INFORMATION
  Report Type: Spontaneous
  Country: US (occurrence: None)
  Receive Date: 20121011
  Receipt Date: 20121203
  Transmission Date: 20140127
  Serious: Yes (Death, Hospitalization)
  Sender: FDA-Public Use
  Company Number: JPI-P-025501

PATIENT
  Age: 58 Year
  Sex: Male
  Weight: 99.79 kg

DRUGS (4)
  1. XYREM [Suspect]
     Indication: SLEEP APNOEA SYNDROME
     Route: 048
     Dates: start: 20040402
  2. XYREM [Suspect]
     Indication: SLEEP DISORDER
     Route: 048
     Dates: start: 20040402
  3. XYREM [Suspect]
     Indication: POOR QUALITY SLEEP
     Route: 048
     Dates: start: 20040402
  4. XYREM [Suspect]
     Indication: NARCOLEPSY
     Route: 048
     Dates: start: 20040402

REACTIONS (3)
  - Volvulus [None]
  - Incision site infection [None]
  - Mesenteric vascular insufficiency [None]
